FAERS Safety Report 17580533 (Version 5)
Quarter: 2020Q4

REPORT INFORMATION
  Report Type: Spontaneous
  Country: JP (occurrence: JP)
  Receive Date: 20200325
  Receipt Date: 20201001
  Transmission Date: 20210113
  Serious: Yes (Other)
  Sender: FDA-Public Use
  Company Number: JP-GILEAD-2020-0455395

PATIENT
  Age: 56 Year
  Sex: Male
  Weight: 63.7 kg

DRUGS (14)
  1. SPIRONOLACTONE. [Concomitant]
     Active Substance: SPIRONOLACTONE
     Dosage: 25 MG, QD
     Route: 048
     Dates: start: 2012
  2. VEMLIDY [Suspect]
     Active Substance: TENOFOVIR ALAFENAMIDE FUMARATE
     Indication: HEPATIC CIRRHOSIS
     Dosage: 25 MG, QD
     Route: 048
     Dates: start: 20190307
  3. LAGNOS [Concomitant]
     Dosage: 12 MG, BID
     Route: 048
     Dates: start: 2016
  4. THYRADIN [Concomitant]
     Active Substance: LEVOTHYROXINE
     Dosage: 100 UG, QD
     Route: 048
     Dates: start: 2017
  5. HEPAACT [Concomitant]
     Dosage: 4.5 G, BID
     Route: 048
     Dates: start: 2016
  6. FUROSEMIDE. [Concomitant]
     Active Substance: FUROSEMIDE
     Dosage: 40 MG, QD
     Route: 048
     Dates: start: 2012
  7. SODIUM RABEPRAZOLE [Concomitant]
     Active Substance: RABEPRAZOLE SODIUM
     Dosage: 10 MG, QD
     Route: 048
     Dates: start: 2011
  8. L-CARNITHINE [Concomitant]
     Active Substance: LEVOCARNITINE
     Dosage: 250 MG, TID
     Route: 048
     Dates: start: 2016
  9. FUROSEMIDE. [Concomitant]
     Active Substance: FUROSEMIDE
     Dosage: 40 MG, BID
     Route: 048
     Dates: start: 2012
  10. TRAZENTA [Concomitant]
     Active Substance: LINAGLIPTIN
     Dosage: 5 MG, QD
     Route: 048
     Dates: start: 2016
  11. RIFXIMA [Concomitant]
     Active Substance: RIFAXIMIN
     Dosage: 400 MG, TID
     Route: 048
     Dates: start: 2016
  12. ORKEDIA [Concomitant]
     Active Substance: EVOCALCET
     Dosage: 1 MG, QD
     Dates: start: 20200207
  13. VEMLIDY [Suspect]
     Active Substance: TENOFOVIR ALAFENAMIDE FUMARATE
     Indication: HEPATITIS B
  14. GLUFAST [Concomitant]
     Active Substance: MITIGLINIDE
     Dosage: 10 MG, TID
     Route: 048
     Dates: start: 2016

REACTIONS (2)
  - Off label use [Unknown]
  - Renal failure [Not Recovered/Not Resolved]

NARRATIVE: CASE EVENT DATE: 20200103
